FAERS Safety Report 5237972-1 (Version None)
Quarter: 2007Q1

REPORT INFORMATION
  Report Type: 
  Country: None (occurrence: None)
  Receive Date: 20070214
  Receipt Date: 20070207
  Transmission Date: 20070707
  Serious: Yes (Death, Other)
  Sender: FDA-Public Use
  Company Number: US-PFIZER INC-2007011103

PATIENT

DRUGS (1)
  1. GEODON [Suspect]
     Indication: AGITATION
     Route: 030

REACTIONS (2)
  - ARRHYTHMIA [None]
  - HYPOXIA [None]
